FAERS Safety Report 6702473-8 (Version None)
Quarter: 2010Q2

REPORT INFORMATION
  Report Type: 
  Country: None (occurrence: None)
  Receive Date: 20100429
  Receipt Date: 20100422
  Transmission Date: 20101027
  Serious: Yes (Life-Threatening, Hospitalization)
  Sender: FDA-Public Use
  Company Number: B0649004A

PATIENT
  Sex: Male

DRUGS (6)
  1. TRACRIUM [Suspect]
     Dosage: 30MG SINGLE DOSE
     Route: 042
     Dates: start: 20100223, end: 20100223
  2. AUGMENTIN '125' [Suspect]
     Indication: ANTIBIOTIC PROPHYLAXIS
     Dosage: 2G SINGLE DOSE
     Route: 042
     Dates: start: 20100223, end: 20100223
  3. KETAMINE [Suspect]
     Dosage: 10MG SINGLE DOSE
     Route: 042
     Dates: start: 20100223, end: 20100223
  4. SUFENTA PRESERVATIVE FREE [Suspect]
     Dosage: 40MCG PER DAY
     Route: 042
     Dates: start: 20100223, end: 20100223
  5. XANAX [Concomitant]
     Indication: PREMEDICATION
     Route: 065
     Dates: start: 20100223
  6. DIPRIVAN [Concomitant]
     Dosage: 1500MG PER DAY
     Route: 065
     Dates: start: 20100223, end: 20100223

REACTIONS (2)
  - CIRCULATORY COLLAPSE [None]
  - GENERALISED ERYTHEMA [None]
